FAERS Safety Report 7272061-6 (Version None)
Quarter: 2011Q1

REPORT INFORMATION
  Report Type: 
  Country: None (occurrence: None)
  Receive Date: 20110131
  Receipt Date: 20110131
  Transmission Date: 20110831
  Serious: No
  Sender: FDA-Public Use
  Company Number: None

PATIENT
  Sex: Female
  Weight: 79.3795 kg

DRUGS (2)
  1. LEVAQUIN [Suspect]
     Indication: EAR DISORDER
     Dosage: 500MG 1 DAILY X 10 DAYS PO
     Route: 048
     Dates: start: 20110116, end: 20110124
  2. LEVAQUIN [Suspect]
     Indication: SINUS CONGESTION
     Dosage: 500MG 1 DAILY X 10 DAYS PO
     Route: 048
     Dates: start: 20110116, end: 20110124

REACTIONS (8)
  - HEART RATE INCREASED [None]
  - DIZZINESS [None]
  - HYPERTENSION [None]
  - PAIN IN EXTREMITY [None]
  - INSOMNIA [None]
  - DISTURBANCE IN ATTENTION [None]
  - ARTHRALGIA [None]
  - VISUAL IMPAIRMENT [None]
